FAERS Safety Report 8303507-X (Version None)
Quarter: 2012Q2

REPORT INFORMATION
  Report Type: 
  Country: None (occurrence: None)
  Receive Date: 20120418
  Receipt Date: 20110217
  Transmission Date: 20120825
  Serious: No
  Sender: FDA-Public Use
  Company Number: AEDEU201100032

PATIENT
  Age: 60 Year
  Sex: Male

DRUGS (1)
  1. PROLASTIN [Suspect]
     Indication: ALPHA-1 ANTI-TRYPSIN DEFICIENCY
     Dosage: 12 GM;1X;IV
     Route: 042
     Dates: start: 19910101

REACTIONS (2)
  - FLUSHING [None]
  - CHILLS [None]
